FAERS Safety Report 9552893 (Version 1)
Quarter: 2013Q3

REPORT INFORMATION
  Report Type: Spontaneous
  Country: US (occurrence: US)
  Receive Date: 20130925
  Receipt Date: 20130925
  Transmission Date: 20140515
  Serious: No
  Sender: FDA-Public Use
  Company Number: US-PURDUE-USA-2012-0082784

PATIENT
  Sex: Male

DRUGS (1)
  1. RYZOLT [Suspect]
     Indication: BACK PAIN
     Dosage: 300 MG, DAILY

REACTIONS (2)
  - Drug effect decreased [Unknown]
  - Extra dose administered [Unknown]
